FAERS Safety Report 15247024 (Version 2)
Quarter: 2018Q3

REPORT INFORMATION
  Report Type: Report from Study
  Country: US (occurrence: US)
  Receive Date: 20180807
  Receipt Date: 20180813
  Transmission Date: 20181010
  Serious: Yes (Hospitalization)
  Sender: FDA-Public Use
  Company Number: US-ROCHE-2163225

PATIENT
  Age: 63 Year
  Sex: Male
  Weight: 74.9 kg

DRUGS (29)
  1. ASPIRIN. [Concomitant]
     Active Substance: ASPIRIN
     Route: 048
  2. ATORVASTATIN [Concomitant]
     Active Substance: ATORVASTATIN
     Route: 065
  3. LOVENOX [Concomitant]
     Active Substance: ENOXAPARIN SODIUM
     Dosage: 120 MG/0.8ML
     Route: 058
  4. NITROLINGUAL [Concomitant]
     Active Substance: NITROGLYCERIN
     Dosage: 400 MCG/SPRAY
     Route: 065
  5. ZOFRAN [Concomitant]
     Active Substance: ONDANSETRON HYDROCHLORIDE
     Dosage: NEEDED
     Route: 058
  6. ACETAMINOPHEN. [Concomitant]
     Active Substance: ACETAMINOPHEN
     Indication: PAIN
     Route: 065
  7. NORVASC [Concomitant]
     Active Substance: AMLODIPINE BESYLATE
     Route: 048
  8. COLACE [Concomitant]
     Active Substance: DOCUSATE SODIUM
     Route: 048
  9. TYLENOL [Concomitant]
     Active Substance: ACETAMINOPHEN
     Route: 048
  10. VINCRISTINE [Suspect]
     Active Substance: VINCRISTINE
     Indication: DIFFUSE LARGE B-CELL LYMPHOMA
     Dosage: 1.4 MG/M2 BY VEIN ON DAY 1 OF ALL CYCLES.
     Route: 065
  11. COREG [Concomitant]
     Active Substance: CARVEDILOL
     Route: 048
  12. VENTOLIN HFA [Concomitant]
     Active Substance: ALBUTEROL SULFATE
     Dosage: 90 MCG/PUFF INHALER.
     Route: 065
  13. CYCLOPHOSPHAMIDE. [Suspect]
     Active Substance: CYCLOPHOSPHAMIDE
     Indication: DIFFUSE LARGE B-CELL LYMPHOMA
     Dosage: 750 MG/M2 VEIN OVER ABOUT 1 HOUR ON DAY 1 OF ALL CYCLES
     Route: 065
  14. LIPITOR [Concomitant]
     Active Substance: ATORVASTATIN CALCIUM
     Dosage: AT BED TIME
     Route: 048
  15. PREDNISOLONE. [Suspect]
     Active Substance: PREDNISOLONE
     Indication: DIFFUSE LARGE B-CELL LYMPHOMA
     Dosage: 100 MG BY MOUTH DAILY ON DAYS 1 ? 5 OF EACH 21 DAY CYCLE
     Route: 065
  16. ALBUTEROL. [Concomitant]
     Active Substance: ALBUTEROL
     Dosage: 90 MCG?INHALE 1?2 PUFFS
     Route: 065
  17. EMLA [Concomitant]
     Active Substance: LIDOCAINE\PRILOCAINE
     Dosage: APPLY TO PORT?A?CATH
     Route: 065
  18. LENALIDOMIDE [Suspect]
     Active Substance: LENALIDOMIDE
     Indication: DIFFUSE LARGE B-CELL LYMPHOMA
     Dosage: 15 MG BY MOUTH ON DAYS 1 TO14 OF EACH 21 DAY CYCLE.
     Route: 065
  19. ULTRAM [Concomitant]
     Active Substance: TRAMADOL HYDROCHLORIDE
     Dosage: EVERY 6 HOURS AS NEEDED.
     Route: 065
  20. VIAGRA [Concomitant]
     Active Substance: SILDENAFIL CITRATE
     Dosage: AS NEEDED DAILY
     Route: 065
  21. NITROLINGUAL [Concomitant]
     Active Substance: NITROGLYCERIN
     Dosage: 400 MCG/SPRAY AS NEEDED.
     Route: 065
  22. CHRONULAC [Concomitant]
     Active Substance: LACTULOSE
     Dosage: 10 GM/15 ML BY MOUTH AS NEEDED.
     Route: 065
  23. OBINUTUZUMAB. [Suspect]
     Active Substance: OBINUTUZUMAB
     Indication: DIFFUSE LARGE B-CELL LYMPHOMA
     Dosage: 1000 MG BY VEIN ON DAYS 1, 8, AND 15 OF CYCLE 1 AND DAY 1 OF CYCLES 2 ? 6.
     Route: 065
  24. DOXORUBICIN [Suspect]
     Active Substance: DOXORUBICIN
     Indication: DIFFUSE LARGE B-CELL LYMPHOMA
     Dosage: 50 MG/M2 BY VEIN OVER ABOUT 15 MINUTES EACH ON DAY 1 OF ALL CYCLES.
     Route: 065
  25. ACETAMINOPHEN. [Concomitant]
     Active Substance: ACETAMINOPHEN
     Indication: PYREXIA
  26. FISH OIL [Concomitant]
     Active Substance: FISH OIL
     Dosage: 300?1000 MG
     Route: 065
  27. MUCINEX [Concomitant]
     Active Substance: GUAIFENESIN
     Dosage: DAILY AS NEEDED.
     Route: 065
  28. COENZYME Q10 COMPLEX (UNK INGREDIENTS) [Concomitant]
     Dosage: 100 MG TWICE A DAY.
     Route: 048
  29. GUAIFENESIN AC [Concomitant]
     Active Substance: CODEINE PHOSPHATE\GUAIFENESIN

REACTIONS (2)
  - Parainfluenzae virus infection [Unknown]
  - Pyrexia [Recovered/Resolved]

NARRATIVE: CASE EVENT DATE: 20160718
